FAERS Safety Report 13966117 (Version 1)
Quarter: 2017Q3

REPORT INFORMATION
  Report Type: Spontaneous
  Country: BR (occurrence: BR)
  Receive Date: 20170913
  Receipt Date: 20170913
  Transmission Date: 20171128
  Serious: Yes (Death, Hospitalization, Other)
  Sender: FDA-Public Use
  Company Number: BR-PFIZER INC-2017SE67357

PATIENT
  Age: 57 Year
  Sex: Male

DRUGS (2)
  1. PIPERACILIN/TAZOBACTAM [Concomitant]
     Active Substance: PIPERACILLIN SODIUM\TAZOBACTAM SODIUM
     Indication: PNEUMONIA
     Dosage: 4.5 G, 4X/DAY
  2. MEROPENEM. [Suspect]
     Active Substance: MEROPENEM
     Indication: ENTEROBACTER INFECTION
     Dosage: 500 MG, 3X/DAY
     Route: 042
     Dates: start: 20140123

REACTIONS (2)
  - Septic shock [Fatal]
  - Pathogen resistance [Fatal]

NARRATIVE: CASE EVENT DATE: 20140217
